FAERS Safety Report 5252821-3 (Version None)
Quarter: 2007Q1

REPORT INFORMATION
  Report Type: 
  Country: None (occurrence: None)
  Receive Date: 20070301
  Receipt Date: 20070223
  Transmission Date: 20070707
  Serious: Yes (Disabling)
  Sender: FDA-Public Use
  Company Number: US-BRISTOL-MYERS SQUIBB COMPANY-13694872

PATIENT
  Age: 50 Year
  Sex: Male

DRUGS (3)
  1. TRAZODONE HCL [Suspect]
     Indication: INSOMNIA
     Route: 048
     Dates: start: 20060101
  2. PAROXETINE HCL [Suspect]
     Indication: DEPRESSION
     Dates: start: 19980101
  3. CHOLESTYRAMINE [Concomitant]

REACTIONS (5)
  - DYSKINESIA [None]
  - MUSCLE SPASMS [None]
  - MUSCLE TWITCHING [None]
  - MYALGIA [None]
  - MYOTONIA [None]
